FAERS Safety Report 9052519 (Version 1)
Quarter: 2013Q1

REPORT INFORMATION
  Report Type: Spontaneous
  Country: US (occurrence: US)
  Receive Date: 20130207
  Receipt Date: 20130207
  Transmission Date: 20140127
  Serious: Yes (Other)
  Sender: FDA-Public Use
  Company Number: PHEH2013US003011

PATIENT
  Sex: Female

DRUGS (10)
  1. LETROZOLE [Suspect]
     Indication: BREAST CANCER
     Dosage: 2.5 MG, DAILY
     Route: 048
  2. AMRINONE [Concomitant]
  3. SYNTHROID [Concomitant]
     Dosage: 125 MG, UNK
  4. CRESTOR [Concomitant]
     Dosage: 10 MG, UNK
  5. HYDROCHLOROTHIAZIDE [Concomitant]
     Dosage: 25 MG, UNK
  6. ASPIRIN [Concomitant]
  7. WARFARIN [Concomitant]
     Dosage: 2.5 MG, UNK
  8. OMEPRAZOLE [Concomitant]
     Dosage: 40 MG, UNK
  9. CALCIUM CITRATE [Concomitant]
  10. PREMARIN [Concomitant]

REACTIONS (1)
  - Atrial fibrillation [Unknown]
